FAERS Safety Report 8339267-6 (Version None)
Quarter: 2012Q2

REPORT INFORMATION
  Report Type: 
  Country: None (occurrence: None)
  Receive Date: 20120507
  Receipt Date: 20120424
  Transmission Date: 20120825
  Serious: Yes (Hospitalization)
  Sender: FDA-Public Use
  Company Number: JP-JNJFOC-20120409210

PATIENT
  Sex: Male
  Weight: 52 kg

DRUGS (10)
  1. REMICADE [Suspect]
     Indication: PSORIASIS
     Route: 042
     Dates: start: 20100817
  2. REMICADE [Suspect]
     Route: 042
     Dates: start: 20100622
  3. OXAROL [Concomitant]
     Indication: PSORIASIS
     Dosage: ROUTE OF ADMIN: OD
  4. ALPRAZOLAM [Concomitant]
     Indication: INSOMNIA
     Dosage: INTERVAL REPORTED AS PRN (AS NEEDED)
     Route: 048
  5. REMICADE [Suspect]
     Dosage: 8TH DOSE OF INFLIXIMAB
     Route: 042
     Dates: start: 20110201
  6. CYCLOSPORINE [Concomitant]
     Indication: PSORIASIS
     Route: 048
     Dates: start: 20050804, end: 20100314
  7. AMLODIPINE [Concomitant]
     Indication: HYPERTENSION
     Route: 048
  8. REMICADE [Suspect]
     Route: 042
     Dates: start: 20100330
  9. REMICADE [Suspect]
     Route: 042
     Dates: start: 20100316
  10. REMICADE [Suspect]
     Route: 042
     Dates: start: 20100427

REACTIONS (1)
  - LUNG NEOPLASM MALIGNANT [None]
